FAERS Safety Report 5001867-9 (Version None)
Quarter: 2006Q2

REPORT INFORMATION
  Report Type: 
  Country: None (occurrence: None)
  Receive Date: 20060515
  Receipt Date: 20060505
  Transmission Date: 20061013
  Serious: Yes (Death, Hospitalization)
  Sender: FDA-Public Use
  Company Number: US-JNJFOC-20051002213

PATIENT
  Age: 81 Year
  Sex: Female

DRUGS (2)
  1. REMICADE [Suspect]
     Indication: RHEUMATOID ARTHRITIS
     Route: 042
  2. PREDNISONE TAB [Concomitant]

REACTIONS (9)
  - ANOREXIA [None]
  - FATIGUE [None]
  - FLUSHING [None]
  - INFUSION RELATED REACTION [None]
  - MYOCARDIAL INFARCTION [None]
  - ORGAN FAILURE [None]
  - PYREXIA [None]
  - RASH [None]
  - SEPSIS [None]
